FAERS Safety Report 25978564 (Version 1)
Quarter: 2025Q4

REPORT INFORMATION
  Report Type: Report from Study
  Country: US (occurrence: US)
  Receive Date: 20251030
  Receipt Date: 20251030
  Transmission Date: 20260118
  Serious: Yes (Death)
  Sender: DAIICHI
  Company Number: US-DSJP-DS-2025-164898-US

PATIENT
  Age: 62 Year
  Sex: Female

DRUGS (3)
  1. ENHERTU [Suspect]
     Active Substance: FAM-TRASTUZUMAB DERUXTECAN-NXKI
     Indication: Product used for unknown indication
     Dosage: 220 MG, ONCE EVERY 3 WK
     Route: 042
     Dates: start: 20250812
  2. ENHERTU [Suspect]
     Active Substance: FAM-TRASTUZUMAB DERUXTECAN-NXKI
     Dosage: 160 MG, ONCE EVERY 3 WK (INFUSE 160 MG INTRAVENOUSLY EVERY 21 DAYS)
     Route: 042
     Dates: start: 20250911, end: 20251013
  3. ENHERTU [Suspect]
     Active Substance: FAM-TRASTUZUMAB DERUXTECAN-NXKI
     Dosage: 160 MG
     Route: 042
     Dates: start: 20250814, end: 20251008

REACTIONS (1)
  - Death [Fatal]

NARRATIVE: CASE EVENT DATE: 20251008
